FAERS Safety Report 20626294 (Version 2)
Quarter: 2023Q1

REPORT INFORMATION
  Report Type: Spontaneous
  Country: US (occurrence: None)
  Receive Date: 20220323
  Receipt Date: 20230321
  Transmission Date: 20230418
  Serious: No
  Sender: FDA-Public Use
  Company Number: US-ROCHE-2878619

PATIENT
  Sex: Female

DRUGS (1)
  1. ERIVEDGE [Suspect]
     Active Substance: VISMODEGIB
     Indication: Basal cell carcinoma
     Route: 048
     Dates: start: 20210608

REACTIONS (7)
  - Diarrhoea [Unknown]
  - Ageusia [Unknown]
  - Fatigue [Unknown]
  - Weight decreased [Unknown]
  - Alopecia [Unknown]
  - Muscle spasms [Unknown]
  - Taste disorder [Unknown]
